FAERS Safety Report 10336892 (Version 2)
Quarter: 2014Q3

REPORT INFORMATION
  Report Type: Spontaneous
  Country: US (occurrence: US)
  Receive Date: 20140723
  Receipt Date: 20140723
  Transmission Date: 20150326
  Serious: No
  Sender: FDA-Public Use
  Company Number: US-UNITED THERAPEUTICS-UTC-044310

PATIENT
  Age: 67 Year
  Sex: Female
  Weight: 102.69 kg

DRUGS (3)
  1. ADCIRCA [Concomitant]
     Active Substance: TADALAFIL
     Route: 048
     Dates: start: 20140122
  2. LETAIRIS [Concomitant]
     Active Substance: AMBRISENTAN
  3. TYVASO [Suspect]
     Active Substance: TREPROSTINIL
     Dosage: 18-54 MICROGRAMS
     Dates: start: 20140127

REACTIONS (7)
  - Cough [Unknown]
  - Fatigue [Unknown]
  - Anxiety [Unknown]
  - Throat irritation [Unknown]
  - Tension [Unknown]
  - Gastroenteritis viral [Unknown]
  - Throat tightness [Unknown]

NARRATIVE: CASE EVENT DATE: 201401
